FAERS Safety Report 24801803 (Version 1)
Quarter: 2025Q1

REPORT INFORMATION
  Report Type: Other
  Country: US (occurrence: None)
  Receive Date: 20250102
  Receipt Date: 20250102
  Transmission Date: 20250408
  Serious: Yes (Other)
  Sender: NAVINTA LLC
  Company Number: US-Navinta LLC-000525

PATIENT
  Age: 63 Year
  Sex: Female

DRUGS (1)
  1. NICARDIPINE [Suspect]
     Active Substance: NICARDIPINE
     Indication: Hypertension

REACTIONS (1)
  - Respiratory failure [Recovering/Resolving]
